FAERS Safety Report 7060853-8 (Version None)
Quarter: 2010Q4

REPORT INFORMATION
  Report Type: 
  Country: None (occurrence: None)
  Receive Date: 20101025
  Receipt Date: 20101012
  Transmission Date: 20110411
  Serious: Yes (Hospitalization)
  Sender: FDA-Public Use
  Company Number: MX-ELI_LILLY_AND_COMPANY-MX201009002224

PATIENT
  Age: 60 Year
  Sex: Female

DRUGS (4)
  1. FORTEO [Suspect]
     Indication: SPINAL DISORDER
     Dosage: UNK UNK, UNKNOWN
     Route: 058
  2. MINOCIN [Concomitant]
     Dosage: UNK, UNKNOWN
     Route: 065
  3. OMEPRAZOLE [Concomitant]
     Indication: DRUG THERAPY
     Dosage: UNK, UNKNOWN
     Route: 065
  4. TRAMADOL [Concomitant]
     Indication: PAIN
     Dosage: UNK, UNKNOWN
     Route: 065

REACTIONS (3)
  - OFF LABEL USE [None]
  - OSTEOMYELITIS [None]
  - SPINAL OSTEOARTHRITIS [None]
